FAERS Safety Report 20416340 (Version 2)
Quarter: 2022Q1

REPORT INFORMATION
  Report Type: Other
  Country: CA (occurrence: CA)
  Receive Date: 20220202
  Receipt Date: 20220325
  Transmission Date: 20220424
  Serious: Yes (Death, Hospitalization, Other)
  Sender: FDA-Public Use
  Company Number: CA-APOTEX-2022AP002874

PATIENT
  Age: 64 Year
  Sex: Female

DRUGS (5)
  1. PIQRAY [Suspect]
     Active Substance: ALPELISIB
     Indication: PIK3CA-activated mutation
     Dosage: UNK
     Route: 048
  2. PIQRAY [Suspect]
     Active Substance: ALPELISIB
     Indication: Breast cancer metastatic
  3. ALPELISIB [Suspect]
     Active Substance: ALPELISIB
     Indication: Breast cancer metastatic
     Dosage: 250 MILLIGRAM, QD
     Route: 065
  4. ALPELISIB [Suspect]
     Active Substance: ALPELISIB
     Dosage: 300 MILLIGRAM
     Route: 065
  5. ALPELISIB [Suspect]
     Active Substance: ALPELISIB
     Dosage: UNK
     Route: 048

REACTIONS (11)
  - Death [Fatal]
  - Diabetic ketoacidosis [Unknown]
  - Abdominal distension [Unknown]
  - Candida infection [Unknown]
  - Feeding disorder [Unknown]
  - Hyperglycaemia [Unknown]
  - Peripheral swelling [Unknown]
  - Retching [Unknown]
  - Diarrhoea [Unknown]
  - Rash [Unknown]
  - Vomiting [Unknown]
